FAERS Safety Report 21044584 (Version 1)
Quarter: 2022Q3

REPORT INFORMATION
  Report Type: Spontaneous
  Country: FR (occurrence: FR)
  Receive Date: 20220705
  Receipt Date: 20220705
  Transmission Date: 20221027
  Serious: Yes (Other)
  Sender: FDA-Public Use
  Company Number: None

PATIENT
  Age: 64 Year
  Sex: Female
  Weight: 44 kg

DRUGS (1)
  1. TERIPARATIDE [Suspect]
     Active Substance: TERIPARATIDE
     Indication: Osteoporotic fracture
     Dosage: 20 UG, DAILY
     Route: 058
     Dates: start: 20210422, end: 20210714

REACTIONS (2)
  - Dystonia [Recovering/Resolving]
  - Injection site reaction [Recovered/Resolved]

NARRATIVE: CASE EVENT DATE: 20210501
